FAERS Safety Report 4728915-5 (Version None)
Quarter: 2005Q3

REPORT INFORMATION
  Report Type: 
  Country: None (occurrence: None)
  Receive Date: 20050729
  Receipt Date: 20041027
  Transmission Date: 20060218
  Serious: No
  Sender: FDA-Public Use
  Company Number: US-GLAXOSMITHKLINE-A0531534A

PATIENT
  Sex: Female

DRUGS (6)
  1. IMITREX [Suspect]
     Indication: MIGRAINE
     Dosage: 50MG AS REQUIRED
     Route: 048
     Dates: start: 19920101
  2. ACTONEL [Concomitant]
  3. DIGITEK [Concomitant]
  4. DILTIAZEM [Concomitant]
  5. ASPIRIN [Concomitant]
  6. CALCIUM D [Concomitant]

REACTIONS (1)
  - VISION BLURRED [None]
